FAERS Safety Report 6984538-9 (Version None)
Quarter: 2010Q3

REPORT INFORMATION
  Report Type: 
  Country: None (occurrence: None)
  Receive Date: 20100915
  Receipt Date: 20100907
  Transmission Date: 20110219
  Serious: Yes (Other)
  Sender: FDA-Public Use
  Company Number: GB-PFIZER INC-2010112614

PATIENT
  Age: 61 Year
  Sex: Male

DRUGS (5)
  1. VIAGRA [Suspect]
     Indication: ERECTILE DYSFUNCTION
     Dosage: 25 MG, AS NEEDED
  2. METFORMIN [Concomitant]
     Dosage: 500 MG, 4X/DAY, 2 IN THE MORNING AND 2 IN THE AFTERNOON
  3. GLIPIZIDE [Concomitant]
     Dosage: 30 MG, 2X/DAY, ONE IN THE MORNING AND ONE IN THE AFTERNOON
  4. CANDESARTAN [Concomitant]
     Dosage: 8 MG, 1X/DAY IN THE MORNING
  5. SIMVASTATIN [Concomitant]
     Dosage: 40 MG, 1X/DAY IN THE EVENING

REACTIONS (6)
  - DYSPNOEA [None]
  - ERECTILE DYSFUNCTION [None]
  - MALAISE [None]
  - MOOD ALTERED [None]
  - MYOCARDIAL INFARCTION [None]
  - PALPITATIONS [None]
